FAERS Safety Report 9120884 (Version 5)
Quarter: 2013Q2

REPORT INFORMATION
  Report Type: Spontaneous
  Country: RO (occurrence: RO)
  Receive Date: 20130226
  Receipt Date: 20130405
  Transmission Date: 20140414
  Serious: Yes (Death, Other)
  Sender: FDA-Public Use
  Company Number: RO-ROCHE-1193183

PATIENT
  Sex: Female

DRUGS (3)
  1. PEGASYS [Suspect]
     Indication: HEPATITIS C
     Route: 058
     Dates: start: 20110804, end: 20120712
  2. COPEGUS [Suspect]
     Indication: HEPATITIS C
     Route: 048
     Dates: start: 20110804, end: 20120712
  3. FILGRASTIM [Concomitant]

REACTIONS (3)
  - B-cell lymphoma [Fatal]
  - Acute lymphocytic leukaemia [Not Recovered/Not Resolved]
  - Hepatitis C [Not Recovered/Not Resolved]
